FAERS Safety Report 21565829 (Version 1)
Quarter: 2022Q4

REPORT INFORMATION
  Report Type: Report from Study
  Country: HU (occurrence: HU)
  Receive Date: 20221108
  Receipt Date: 20221108
  Transmission Date: 20230113
  Serious: Yes (Other)
  Sender: FDA-Public Use
  Company Number: HU-MYLANLABS-2022M1122505

PATIENT
  Age: 34 Year
  Sex: Male

DRUGS (4)
  1. PHENYTOIN [Suspect]
     Active Substance: PHENYTOIN
     Indication: Temporal lobe epilepsy
     Dosage: UNK
     Route: 065
  2. PHENYTOIN [Suspect]
     Active Substance: PHENYTOIN
     Indication: Seizure
  3. LAMOTRIGINE [Suspect]
     Active Substance: LAMOTRIGINE
     Indication: Temporal lobe epilepsy
     Dosage: UNK
     Route: 065
  4. LAMOTRIGINE [Suspect]
     Active Substance: LAMOTRIGINE
     Indication: Seizure

REACTIONS (1)
  - Drug ineffective [Unknown]
